FAERS Safety Report 11667961 (Version 2)
Quarter: 2015Q4

REPORT INFORMATION
  Report Type: Report from Study
  Country: BR (occurrence: BR)
  Receive Date: 20151027
  Receipt Date: 20151029
  Transmission Date: 20160304
  Serious: Yes (Other)
  Sender: FDA-Public Use
  Company Number: PHHY2015BR136352

PATIENT
  Sex: Female
  Weight: 85 kg

DRUGS (3)
  1. ATORAN [Suspect]
     Active Substance: ATORVASTATIN CALCIUM
     Indication: BLOOD PRESSURE ABNORMAL
     Route: 065
  2. DIOVAN HCT [Suspect]
     Active Substance: HYDROCHLOROTHIAZIDE\VALSARTAN
     Indication: HYPERTENSION
     Dosage: 1 DF, QD
     Route: 065
  3. ANASTROZOLE. [Suspect]
     Active Substance: ANASTROZOLE
     Indication: PRODUCT USED FOR UNKNOWN INDICATION
     Dosage: UNK
     Route: 065

REACTIONS (8)
  - Visual acuity reduced [Recovering/Resolving]
  - Balance disorder [Not Recovered/Not Resolved]
  - Arrhythmia [Unknown]
  - Neoplasm malignant [Unknown]
  - Blood pressure decreased [Unknown]
  - Gait disturbance [Unknown]
  - Heart rate decreased [Unknown]
  - Cataract [Unknown]
